FAERS Safety Report 16095185 (Version 2)
Quarter: 2020Q3

REPORT INFORMATION
  Report Type: Spontaneous
  Country: CN (occurrence: CN)
  Receive Date: 20190320
  Receipt Date: 20200706
  Transmission Date: 20201102
  Serious: Yes (Death, Other)
  Sender: FDA-Public Use
  Company Number: CN-BRISTOL-MYERS SQUIBB COMPANY-BMS-2019-022196

PATIENT
  Age: 64 Year
  Sex: Male
  Weight: 57 kg

DRUGS (2)
  1. OPDIVO [Suspect]
     Active Substance: NIVOLUMAB
     Indication: SMALL CELL LUNG CANCER
     Dosage: 140 MG, UNK
     Route: 041
     Dates: start: 20190107, end: 20190107
  2. OPDIVO [Suspect]
     Active Substance: NIVOLUMAB
     Indication: HEPATIC CANCER

REACTIONS (4)
  - Autoimmune hepatitis [Fatal]
  - Intentional product use issue [Unknown]
  - Autoimmune thyroid disorder [Fatal]
  - Renal injury [Fatal]

NARRATIVE: CASE EVENT DATE: 20190116
